FAERS Safety Report 9630924 (Version 2)
Quarter: 2013Q4

REPORT INFORMATION
  Report Type: Spontaneous
  Country: US (occurrence: US)
  Receive Date: 20131018
  Receipt Date: 20131202
  Transmission Date: 20140711
  Serious: Yes (Other)
  Sender: FDA-Public Use
  Company Number: US-PFIZER INC-2013296335

PATIENT
  Age: 73 Year
  Sex: Male
  Weight: 122 kg

DRUGS (5)
  1. NEURONTIN [Suspect]
     Indication: NEUROPATHY PERIPHERAL
     Dosage: UNK
  2. LYRICA [Suspect]
     Indication: NEUROPATHY PERIPHERAL
     Dosage: 75 MG, 2X/DAY
  3. NOVOLOG [Suspect]
     Indication: DIABETES MELLITUS
     Dosage: UNK
  4. LANTUS [Suspect]
     Indication: DIABETES MELLITUS
     Dosage: UNK
  5. VIAGRA [Concomitant]
     Dosage: UNK

REACTIONS (7)
  - Diabetes mellitus [Unknown]
  - Muscle spasms [Unknown]
  - Nausea [Unknown]
  - Paraesthesia [Unknown]
  - Gait disturbance [Unknown]
  - Fatigue [Unknown]
  - Blood glucose increased [Unknown]
